FAERS Safety Report 16300093 (Version 1)
Quarter: 2019Q2

REPORT INFORMATION
  Report Type: Spontaneous
  Country: US (occurrence: US)
  Receive Date: 20190510
  Receipt Date: 20190510
  Transmission Date: 20190711
  Serious: Yes (Hospitalization)
  Sender: FDA-Public Use
  Company Number: US-PFIZER INC-2019199788

PATIENT
  Age: 60 Year
  Sex: Female

DRUGS (1)
  1. XELJANZ XR [Suspect]
     Active Substance: TOFACITINIB CITRATE
     Indication: RHEUMATOID ARTHRITIS
     Dosage: 11 MG, DAILY
     Route: 048
     Dates: start: 2019

REACTIONS (6)
  - Pain of skin [Unknown]
  - Pruritus [Not Recovered/Not Resolved]
  - Pneumonia aspiration [Unknown]
  - Skin wound [Recovered/Resolved]
  - Small intestinal obstruction [Unknown]
  - Infection [Unknown]

NARRATIVE: CASE EVENT DATE: 2019
